FAERS Safety Report 9706683 (Version 1)
Quarter: 2013Q4

REPORT INFORMATION
  Report Type: Spontaneous
  Country: US (occurrence: US)
  Receive Date: 20131125
  Receipt Date: 20131125
  Transmission Date: 20140711
  Serious: Yes (Other)
  Sender: FDA-Public Use
  Company Number: US-SA-2013SA121476

PATIENT
  Age: 46 Year
  Sex: Female

DRUGS (2)
  1. LANTUS SOLOSTAR [Suspect]
     Dosage: 50 UNITS MORNING AND 25 UNITS EVENNING.
     Route: 058
  2. SOLOSTAR [Concomitant]

REACTIONS (1)
  - Cardiac disorder [Unknown]
